FAERS Safety Report 10648086 (Version 1)
Quarter: 2014Q4

REPORT INFORMATION
  Report Type: Spontaneous
  Country: US (occurrence: None)
  Receive Date: 20141211
  Receipt Date: 20141211
  Transmission Date: 20150529
  Serious: No
  Sender: FDA-Public Use
  Company Number: None

PATIENT

DRUGS (2)
  1. ONDANSETRON [Suspect]
     Active Substance: ONDANSETRON
     Dosage: DOSE FORM: INJECTABLE, ADM ROUTE: INJECTION, STRENGTH: 4 MG/2 ML, TYPE: SINGLE DOSE VIALS, SIZE: 2 ML
     Route: 050
  2. ADENOSINE. [Suspect]
     Active Substance: ADENOSINE
     Dosage: DOSE FORM: INJECTABLE, ADM ROUTE: FOR RAPID BOLUS IV U, STRENGTH: 6 MG PER 2 ML, TYPE: SINGLE DOSE VIALS, SIZE: 2 ML
     Route: 040

REACTIONS (2)
  - Product container issue [None]
  - Product label confusion [None]
